FAERS Safety Report 9044433 (Version 1)
Quarter: 2013Q1

REPORT INFORMATION
  Report Type: Spontaneous
  Country: US (occurrence: US)
  Receive Date: 20130131
  Receipt Date: 20130131
  Transmission Date: 20140127
  Serious: No
  Sender: FDA-Public Use
  Company Number: US-BIOGENIDEC-2013BI008065

PATIENT
  Age: 51 Year
  Sex: Male

DRUGS (1)
  1. AVONEX [Suspect]
     Indication: MULTIPLE SCLEROSIS
     Route: 030
     Dates: start: 20110316

REACTIONS (3)
  - Mobility decreased [Recovered/Resolved with Sequelae]
  - Depression [Not Recovered/Not Resolved]
  - Fatigue [Recovered/Resolved with Sequelae]
